FAERS Safety Report 15323172 (Version 6)
Quarter: 2019Q2

REPORT INFORMATION
  Report Type: Spontaneous
  Country: US (occurrence: US)
  Receive Date: 20180827
  Receipt Date: 20190401
  Transmission Date: 20190711
  Serious: No
  Sender: FDA-Public Use
  Company Number: US-PFIZER INC-2018341496

PATIENT
  Age: 72 Year
  Sex: Male

DRUGS (3)
  1. ALTACE [Concomitant]
     Active Substance: RAMIPRIL
     Dosage: UNK
  2. SPIRONOLACTONE. [Suspect]
     Active Substance: SPIRONOLACTONE
     Indication: HYPERALDOSTERONISM
     Dosage: 75 MG, DAILY, (50 MG IN AM; 25 MG AT NOON)
     Dates: start: 1980
  3. NEXIUM I.V. [Concomitant]
     Active Substance: ESOMEPRAZOLE SODIUM
     Dosage: UNK

REACTIONS (6)
  - Ear discomfort [Unknown]
  - Chest pain [Unknown]
  - Malaise [Unknown]
  - Asthenia [Unknown]
  - Ocular discomfort [Unknown]
  - Drug ineffective [Unknown]
